FAERS Safety Report 25513705 (Version 1)
Quarter: 2025Q3

REPORT INFORMATION
  Report Type: Spontaneous
  Country: US (occurrence: US)
  Receive Date: 20250703
  Receipt Date: 20250703
  Transmission Date: 20251021
  Serious: No
  Sender: SANOFI AVENTIS
  Company Number: US-SA-2025SA186512

PATIENT
  Sex: Male
  Weight: 54.55 kg

DRUGS (4)
  1. DUPIXENT [Suspect]
     Active Substance: DUPILUMAB
     Indication: Product used for unknown indication
     Dosage: 300 MG, QW
     Route: 058
  2. TYLENOL [Concomitant]
     Active Substance: ACETAMINOPHEN
  3. VITAMINS [Concomitant]
     Active Substance: VITAMINS
  4. TUMS CHEWIES [Concomitant]

REACTIONS (2)
  - Increased appetite [Unknown]
  - Weight increased [Unknown]
